APPROVED DRUG PRODUCT: CYANOCOBALAMIN
Active Ingredient: CYANOCOBALAMIN
Strength: 0.03MG/ML
Dosage Form/Route: INJECTABLE;INJECTION
Application: A080510 | Product #003
Applicant: ABRAXIS PHARMACEUTICAL PRODUCTS
Approved: Approved Prior to Jan 1, 1982 | RLD: No | RS: No | Type: DISCN